FAERS Safety Report 18935558 (Version 1)
Quarter: 2021Q1

REPORT INFORMATION
  Report Type: Spontaneous
  Country: CH (occurrence: CH)
  Receive Date: 20210224
  Receipt Date: 20210224
  Transmission Date: 20210420
  Serious: Yes (Hospitalization, Other)
  Sender: FDA-Public Use
  Company Number: CH-BAXTER-2021BAX003362

PATIENT
  Age: 57 Year
  Sex: Female
  Weight: 90 kg

DRUGS (19)
  1. PARAPLATIN [Suspect]
     Active Substance: CARBOPLATIN
     Indication: METASTASES TO LYMPH NODES
     Dosage: IN TOTAL, COMBINED ADJUVANT CHEMO/IMMUNOTHERAPY
     Route: 065
     Dates: start: 20201216, end: 20201216
  2. PARAPLATIN [Suspect]
     Active Substance: CARBOPLATIN
     Indication: BREAST CANCER FEMALE
  3. TAXOL [Suspect]
     Active Substance: PACLITAXEL
     Dosage: IN TOTAL, COMBINED ADJUVANT CHEMO/IMMUNOTHERAPY
     Route: 065
     Dates: start: 20201230, end: 20201230
  4. ENDOXAN 1 G. TROCKENSUBSTANZ ZUR INTRAVENOSEN INFUSION [Suspect]
     Active Substance: CYCLOPHOSPHAMIDE
     Indication: METASTASES TO LYMPH NODES
     Dosage: IN TOTAL, COMBINED ADJUVANT CHEMO/IMMUNOTHERAPY
     Route: 065
     Dates: start: 20210106, end: 20210106
  5. ADRIBLASTIN [Suspect]
     Active Substance: DOXORUBICIN HYDROCHLORIDE
     Indication: BREAST CANCER FEMALE
  6. TAXOL [Suspect]
     Active Substance: PACLITAXEL
     Indication: METASTASES TO LYMPH NODES
     Dosage: IN TOTAL, COMBINED ADJUVANT CHEMO/IMMUNOTHERAPY
     Route: 065
     Dates: start: 20201216, end: 20201216
  7. ADRIBLASTIN [Suspect]
     Active Substance: DOXORUBICIN HYDROCHLORIDE
     Indication: METASTASES TO LYMPH NODES
     Dosage: IN TOTAL, COMBINED ADJUVANT CHEMO/IMMUNOTHERAPY
     Route: 065
     Dates: start: 20210106, end: 20210106
  8. AKYNZEO [Suspect]
     Active Substance: NETUPITANT\PALONOSETRON HYDROCHLORIDE
     Indication: PRODUCT USED FOR UNKNOWN INDICATION
     Dosage: CYCLICAL
     Route: 065
     Dates: start: 202012, end: 202101
  9. PANTOPRAZOL [Suspect]
     Active Substance: PANTOPRAZOLE SODIUM
     Indication: PRODUCT USED FOR UNKNOWN INDICATION
     Dosage: CYCLICAL
     Route: 065
     Dates: start: 202012, end: 202101
  10. NEULASTA [Suspect]
     Active Substance: PEGFILGRASTIM
     Indication: PRODUCT USED FOR UNKNOWN INDICATION
     Dosage: IN TOTAL
     Route: 065
     Dates: start: 20210106, end: 20210106
  11. DAFALGAN [Suspect]
     Active Substance: ACETAMINOPHEN
     Indication: HEADACHE
     Dosage: IN TOTAL, DOSAGE FORM: TABLET
     Route: 065
     Dates: start: 202101, end: 202101
  12. DEXAMETHASONE. [Suspect]
     Active Substance: DEXAMETHASONE
     Indication: PRODUCT USED FOR UNKNOWN INDICATION
     Route: 065
     Dates: start: 202012, end: 202101
  13. KEYTRUDA [Suspect]
     Active Substance: PEMBROLIZUMAB
     Indication: BREAST CANCER FEMALE
     Dosage: IN TOTAL, COMBINED ADJUVANT CHEMO/IMMUNOTHERAPY
     Route: 065
     Dates: start: 20210106, end: 20210106
  14. TAXOL [Suspect]
     Active Substance: PACLITAXEL
     Indication: BREAST CANCER FEMALE
     Dosage: IN TOTAL, COMBINED ADJUVANT CHEMO/IMMUNOTHERAPY
     Route: 065
     Dates: start: 20201223, end: 20201223
  15. TAVEGYL [Suspect]
     Active Substance: CLEMASTINE FUMARATE
     Indication: PRODUCT USED FOR UNKNOWN INDICATION
     Dosage: CYCLICAL
     Route: 065
     Dates: start: 202012, end: 202101
  16. ENDOXAN 1 G. TROCKENSUBSTANZ ZUR INTRAVENOSEN INFUSION [Suspect]
     Active Substance: CYCLOPHOSPHAMIDE
     Indication: BREAST CANCER FEMALE
  17. KEYTRUDA [Suspect]
     Active Substance: PEMBROLIZUMAB
     Indication: METASTASES TO LYMPH NODES
     Dosage: IN TOTAL, COMBINED ADJUVANT CHEMO/IMMUNOTHERAPY
     Route: 065
     Dates: start: 20201216, end: 20201216
  18. TAXOL [Suspect]
     Active Substance: PACLITAXEL
     Dosage: IN TOTAL, COMBINED ADJUVANT CHEMO/IMMUNOTHERAPY
     Route: 065
     Dates: start: 20210112, end: 20210112
  19. TEMESTA [LORAZEPAM] [Suspect]
     Active Substance: LORAZEPAM
     Indication: PRODUCT USED FOR UNKNOWN INDICATION
     Dosage: CYCLICAL
     Route: 065
     Dates: start: 202012, end: 202101

REACTIONS (2)
  - Lichenoid keratosis [Recovering/Resolving]
  - SJS-TEN overlap [Recovering/Resolving]

NARRATIVE: CASE EVENT DATE: 20210112
